FAERS Safety Report 7465573-3 (Version None)
Quarter: 2011Q2

REPORT INFORMATION
  Report Type: 
  Country: None (occurrence: None)
  Receive Date: 20110509
  Receipt Date: 20110504
  Transmission Date: 20111010
  Serious: Yes (Death, Hospitalization)
  Sender: FDA-Public Use
  Company Number: PL-ROCHE-775337

PATIENT
  Age: 78 Year
  Sex: Female

DRUGS (3)
  1. OXALIPLATIN [Concomitant]
     Indication: COLORECTAL CANCER METASTATIC
     Dosage: START DATE 2011.
  2. XELODA [Suspect]
     Dosage: 75 % REDUCTION IN THERAPY.
     Route: 065
  3. XELODA [Suspect]
     Indication: COLORECTAL CANCER METASTATIC
     Dosage: ONSET DATE 2011
     Route: 065

REACTIONS (2)
  - DEATH [None]
  - DIARRHOEA [None]
